FAERS Safety Report 16411497 (Version 3)
Quarter: 2019Q3

REPORT INFORMATION
  Report Type: Spontaneous
  Country: JP (occurrence: JP)
  Receive Date: 20190610
  Receipt Date: 20190719
  Transmission Date: 20191004
  Serious: Yes (Disabling, Other)
  Sender: FDA-Public Use
  Company Number: JP-PFIZER INC-2019167362

PATIENT
  Age: 75 Year
  Sex: Female

DRUGS (7)
  1. CALONAL [Concomitant]
     Active Substance: ACETAMINOPHEN
     Indication: HEREDITARY NEUROPATHIC AMYLOIDOSIS
     Dosage: 400 MG, 3X/DAY
     Route: 048
     Dates: start: 201810
  2. KEISHIBUKURYOGAN [Concomitant]
     Active Substance: HERBALS
     Indication: HEREDITARY NEUROPATHIC AMYLOIDOSIS
     Dosage: 2.5 G, 3X/DAY
     Dates: start: 201810
  3. LYRICA [Concomitant]
     Active Substance: PREGABALIN
     Indication: HEREDITARY NEUROPATHIC AMYLOIDOSIS
     Dosage: 50 MG, 1X/DAY
     Route: 048
     Dates: start: 2007
  4. HIRUDOID [Concomitant]
     Active Substance: GLYCOSAMINOGLYCANS
     Dosage: 50 G X 4 BOTTLES
  5. ZETIA [Concomitant]
     Active Substance: EZETIMIBE
  6. VYNDAQEL [Suspect]
     Active Substance: TAFAMIDIS MEGLUMINE
     Indication: HEREDITARY NEUROPATHIC AMYLOIDOSIS
     Dosage: 20 MG, 1X/DAY
     Route: 048
     Dates: start: 20190405
  7. GOSHAJINKIGAN [Concomitant]
     Active Substance: HERBALS
     Indication: HEREDITARY NEUROPATHIC AMYLOIDOSIS
     Dosage: 2.5 G, 3X/DAY
     Route: 048
     Dates: start: 201810

REACTIONS (15)
  - Headache [Recovering/Resolving]
  - Dizziness postural [Unknown]
  - Hypoaesthesia [Not Recovered/Not Resolved]
  - Diarrhoea [Recovered/Resolved]
  - Condition aggravated [Not Recovered/Not Resolved]
  - Decreased appetite [Unknown]
  - Sensory disturbance [Unknown]
  - Condition aggravated [Unknown]
  - Vision blurred [Not Recovered/Not Resolved]
  - Intraocular pressure increased [Recovered/Resolved]
  - Visual impairment [Unknown]
  - Retinal haemorrhage [Not Recovered/Not Resolved]
  - Nausea [Recovered/Resolved]
  - Swelling [Unknown]
  - Constipation [Unknown]

NARRATIVE: CASE EVENT DATE: 2019
